FAERS Safety Report 20434116 (Version 1)
Quarter: 2022Q1

REPORT INFORMATION
  Report Type: Other
  Country: CN (occurrence: CN)
  Receive Date: 20220206
  Receipt Date: 20220206
  Transmission Date: 20220424
  Serious: Yes (Hospitalization, Other)
  Sender: FDA-Public Use
  Company Number: CN-DEXPHARM-20220125

PATIENT
  Age: 27 Year
  Sex: Female

DRUGS (4)
  1. VENLAFAXINE [Interacting]
     Active Substance: VENLAFAXINE HYDROCHLORIDE
     Indication: Depression
     Dosage: ADMITTED TO OUR DEPARTMENT OF CLINICAL PSYCHOLOGY ON MARCH 9, 2021, AND LOW-DOSE VEN 50MG (ORAL, ...
     Route: 050
     Dates: start: 20210309, end: 20210319
  2. VENLAFAXINE [Interacting]
     Active Substance: VENLAFAXINE HYDROCHLORIDE
     Indication: Depression
     Route: 050
     Dates: start: 20210319
  3. LORAZEPAM [Interacting]
     Active Substance: LORAZEPAM
     Indication: Anxiety
     Dosage: LORAZEPAM 1MG (ORAL, Q.N)
     Route: 050
  4. ZOLPIDEM [Interacting]
     Active Substance: ZOLPIDEM TARTRATE
     Indication: Anxiety
     Dosage: ZOLPIDEM TARTRATE 10MG (ORAL, QN)
     Route: 050

REACTIONS (2)
  - Hepatitis [Recovered/Resolved]
  - Drug interaction [Recovered/Resolved]
